FAERS Safety Report 14307205 (Version 2)
Quarter: 2017Q4

REPORT INFORMATION
  Report Type: Spontaneous
  Country: IT (occurrence: IT)
  Receive Date: 20171220
  Receipt Date: 20171223
  Transmission Date: 20180321
  Serious: Yes (Death)
  Sender: FDA-Public Use
  Company Number: IT-ABBVIE-17S-083-2197590-00

PATIENT
  Age: 71 Year
  Sex: Female

DRUGS (5)
  1. EXVIERA [Suspect]
     Active Substance: DASABUVIR
     Indication: CHRONIC HEPATITIS C
     Route: 048
     Dates: start: 20171016, end: 20171102
  2. MICARDIS [Concomitant]
     Active Substance: TELMISARTAN
     Indication: PRODUCT USED FOR UNKNOWN INDICATION
     Route: 065
  3. CARDIOASPIRIN [Concomitant]
     Active Substance: ASPIRIN
     Indication: PRODUCT USED FOR UNKNOWN INDICATION
     Dosage: COMPRESSE GASTRORESISTENTI
     Route: 065
  4. METOPROLOL. [Concomitant]
     Active Substance: METOPROLOL
     Indication: PRODUCT USED FOR UNKNOWN INDICATION
     Route: 065
  5. VIEKIRAX [Suspect]
     Active Substance: OMBITASVIR\PARITAPREVIR\RITONAVIR
     Indication: CHRONIC HEPATITIS C
     Dosage: VIEKIRAX 12.5 MG/75 MG/50 MG FILM-COATED TABLETS
     Route: 048
     Dates: start: 20171016, end: 20171102

REACTIONS (8)
  - Vomiting [Fatal]
  - Jaundice [Fatal]
  - Hepatorenal failure [Fatal]
  - Renal failure [Fatal]
  - Asthenia [Fatal]
  - Cardiac failure [Fatal]
  - Hepatic cirrhosis [Fatal]
  - Ascites [Fatal]

NARRATIVE: CASE EVENT DATE: 20171103
